FAERS Safety Report 5876045-1 (Version None)
Quarter: 2008Q3

REPORT INFORMATION
  Report Type: 
  Country: None (occurrence: None)
  Receive Date: 20080908
  Receipt Date: 20080908
  Transmission Date: 20090109
  Serious: Yes (Other)
  Sender: FDA-Public Use
  Company Number: None

PATIENT
  Age: 64 Year
  Sex: Female
  Weight: 83.0083 kg

DRUGS (3)
  1. EFFEXOR XR [Suspect]
     Indication: DEATH OF RELATIVE
     Dosage: 75MG THEN CUT IT TO 77.5 DAILY PO
     Route: 048
     Dates: start: 20080518, end: 20080707
  2. EFFEXOR XR [Suspect]
     Indication: DEPRESSION
     Dosage: 75MG THEN CUT IT TO 77.5 DAILY PO
     Route: 048
     Dates: start: 20080518, end: 20080707
  3. EFFEXOR XR [Suspect]
     Indication: LETHARGY
     Dosage: 75MG THEN CUT IT TO 77.5 DAILY PO
     Route: 048
     Dates: start: 20080518, end: 20080707

REACTIONS (8)
  - ACTIVITIES OF DAILY LIVING IMPAIRED [None]
  - BLOOD PRESSURE INCREASED [None]
  - DIZZINESS [None]
  - GAIT DISTURBANCE [None]
  - HEART RATE INCREASED [None]
  - ILL-DEFINED DISORDER [None]
  - MUSCLE SPASMS [None]
  - PHOTOSENSITIVITY REACTION [None]
